FAERS Safety Report 5372817-0 (Version None)
Quarter: 2007Q2

REPORT INFORMATION
  Report Type: 
  Country: None (occurrence: None)
  Receive Date: 20070626
  Receipt Date: 20070618
  Transmission Date: 20071010
  Serious: Yes (Other)
  Sender: FDA-Public Use
  Company Number: 2007AL002500

PATIENT
  Age: 71 Year
  Sex: Male

DRUGS (6)
  1. DIAZEPAM [Suspect]
  2. DICLOFENAC [Concomitant]
  3. DULOXETINE [Concomitant]
  4. CORTISONE ACETATE [Concomitant]
  5. VALORON N SOLUTION [Concomitant]
  6. VALORON N RETARD [Concomitant]

REACTIONS (4)
  - BRADYPHRENIA [None]
  - COGNITIVE DISORDER [None]
  - ELEVATED MOOD [None]
  - MEMORY IMPAIRMENT [None]
